FAERS Safety Report 6141161-6 (Version None)
Quarter: 2009Q2

REPORT INFORMATION
  Report Type: 
  Country: None (occurrence: None)
  Receive Date: 20090401
  Receipt Date: 20090401
  Transmission Date: 20091009
  Serious: No
  Sender: FDA-Public Use
  Company Number: None

PATIENT
  Sex: Female

DRUGS (1)
  1. SYNTHROID [Suspect]
     Indication: HYPOTHYROIDISM
     Dosage: 150 MCG 1 TAB DAILY

REACTIONS (2)
  - ANAPHYLACTIC SHOCK [None]
  - REACTION TO DRUG EXCIPIENTS [None]
